FAERS Safety Report 22197450 (Version 1)
Quarter: 2023Q2

REPORT INFORMATION
  Report Type: Spontaneous
  Country: US (occurrence: US)
  Receive Date: 20230411
  Receipt Date: 20230411
  Transmission Date: 20230721
  Serious: Yes (Death, Life-Threatening, Hospitalization, Other)
  Sender: FDA-Public Use
  Company Number: US-PFIZER INC-202300145015

PATIENT
  Age: 84 Year
  Sex: Male

DRUGS (6)
  1. FUROSEMIDE [Suspect]
     Active Substance: FUROSEMIDE
     Indication: Hypervolaemia
     Dosage: 40 MG, 2X/DAY
     Route: 048
  2. FUROSEMIDE [Suspect]
     Active Substance: FUROSEMIDE
     Indication: Cardiac failure
  3. CEFPODOXIME [Suspect]
     Active Substance: CEFPODOXIME
     Indication: Antibiotic prophylaxis
     Dosage: 400 MG, 1X/DAY, 5 DAYS
     Route: 048
  4. CEFPODOXIME [Suspect]
     Active Substance: CEFPODOXIME
     Dosage: 400 MG, 1X/DAY, FOR THREE MORE DAYS
     Route: 048
  5. METOLAZONE [Suspect]
     Active Substance: METOLAZONE
     Indication: Hypotension
     Dosage: 2.5 MG, 1X/DAY
     Route: 048
  6. METOLAZONE [Suspect]
     Active Substance: METOLAZONE
     Dosage: 5 MG, 1X/DAY
     Route: 048

REACTIONS (5)
  - Drug ineffective [Fatal]
  - Mental status changes [Fatal]
  - Encephalopathy [Fatal]
  - Myoclonus [Fatal]
  - Delirium [Unknown]
